FAERS Safety Report 8835745 (Version 2)
Quarter: 2012Q4

REPORT INFORMATION
  Report Type: Report from Study
  Country: JP (occurrence: JP)
  Receive Date: 20121011
  Receipt Date: 20121126
  Transmission Date: 20130627
  Serious: Yes (Other)
  Sender: FDA-Public Use
  Company Number: PHHY2012JP067094

PATIENT

DRUGS (10)
  1. ALISKIREN [Suspect]
     Indication: HYPERTENSION
     Dosage: 150 mg, QD
     Route: 048
     Dates: start: 20101230, end: 20110216
  2. MAINTATE [Concomitant]
     Indication: HYPERTENSION
     Dosage: 5 mg, UNK
     Route: 048
     Dates: start: 20040802
  3. ALDACTONE-A [Concomitant]
     Indication: HYPERTENSION
     Dosage: 25 mg, UNK
     Route: 048
     Dates: start: 20090115
  4. LASIX [Concomitant]
     Indication: HYPERTENSION
     Dosage: 80 mg, UNK
     Route: 048
     Dates: start: 20050228
  5. AMLODIN [Concomitant]
     Indication: HYPERTENSION
     Dosage: 10 mg, UNK
     Route: 048
     Dates: start: 20101028
  6. MICARDIS [Concomitant]
     Indication: HYPERTENSION
     Dosage: 80 mg, UNK
     Route: 048
     Dates: start: 20050228
  7. PERSANTIN [Concomitant]
     Dosage: 200 mg, UNK
     Route: 048
     Dates: start: 20061107
  8. ONEALFA [Concomitant]
     Dosage: 1 ug, UNK
     Route: 048
     Dates: start: 20091224
  9. BREDININ [Concomitant]
     Dosage: 25 mg, UNK
     Route: 048
     Dates: start: 20090115
  10. KREMEZIN [Concomitant]
     Dosage: 2 g, UNK
     Route: 048
     Dates: start: 20090115

REACTIONS (8)
  - Renal impairment [Not Recovered/Not Resolved]
  - Blood urea increased [Recovering/Resolving]
  - Blood pressure systolic increased [Not Recovered/Not Resolved]
  - Anaemia [Not Recovered/Not Resolved]
  - Haemoglobin decreased [Unknown]
  - Haematocrit decreased [Unknown]
  - Hyperkalaemia [Unknown]
  - Drug ineffective [Unknown]
